FAERS Safety Report 4846419-6 (Version None)
Quarter: 2005Q4

REPORT INFORMATION
  Report Type: 
  Country: None (occurrence: None)
  Receive Date: 20051202
  Receipt Date: 20051121
  Transmission Date: 20060501
  Serious: Yes (Hospitalization)
  Sender: FDA-Public Use
  Company Number: 2005-US-00086

PATIENT
  Age: 49 Year
  Sex: Female
  Weight: 86.1834 kg

DRUGS (10)
  1. ALBUTEROL [Suspect]
     Indication: ASTHMA
     Dosage: 2.5 MG, INHALATION
     Route: 055
  2. LEVOSALBUTAMOL HYDROCHLORIDE [Suspect]
     Indication: ASTHMA
     Dosage: 1.25 MG
  3. PRAMIPEXOLE DIHYDROCHLORIDE [Concomitant]
  4. SERETIDE [Concomitant]
  5. GABAPENTIN [Concomitant]
  6. DIPROPHYLLINE [Concomitant]
  7. PANTOPRAZOLE [Concomitant]
  8. MONTELUKAST [Concomitant]
  9. PREDNISONE [Concomitant]
  10. NEDOCROMIL SODIUM [Concomitant]

REACTIONS (4)
  - CHEST PAIN [None]
  - ELECTROCARDIOGRAM ST SEGMENT ELEVATION [None]
  - LIVER FUNCTION TEST ABNORMAL [None]
  - REFUSAL OF TREATMENT BY PATIENT [None]
